FAERS Safety Report 5902872-8 (Version None)
Quarter: 2008Q3

REPORT INFORMATION
  Report Type: 
  Country: None (occurrence: None)
  Receive Date: 20080926
  Receipt Date: 20080924
  Transmission Date: 20090109
  Serious: Yes (Death)
  Sender: FDA-Public Use
  Company Number: AZAES200800329

PATIENT
  Age: 70 Year
  Sex: Male

DRUGS (3)
  1. VIDAZA [Suspect]
     Indication: MYELODYSPLASTIC SYNDROME
     Dosage: SUBCUTANEOUS
     Route: 058
     Dates: start: 20080101, end: 20080101
  2. ANTIFUNGALS (ANTIFUNGALS) [Concomitant]
  3. ANTIBIOTICS (ANTIBIOTICS) [Concomitant]

REACTIONS (1)
  - COLITIS ISCHAEMIC [None]
